FAERS Safety Report 20068503 (Version 1)
Quarter: 2021Q4

REPORT INFORMATION
  Report Type: Spontaneous
  Country: NL (occurrence: NL)
  Receive Date: 20211115
  Receipt Date: 20211115
  Transmission Date: 20220303
  Serious: Yes (Disabling)
  Sender: FDA-Public Use
  Company Number: None

PATIENT
  Sex: Female
  Weight: 56 kg

DRUGS (3)
  1. PAROXETINE [Suspect]
     Active Substance: PAROXETINE
     Indication: Depression
     Dosage: 30 MILLIGRAM, QD (30 MG PER DAG)
     Dates: start: 201703, end: 20190516
  2. PAROXETINE [Suspect]
     Active Substance: PAROXETINE
     Indication: Anxiety
  3. QUETIAPINE [Suspect]
     Active Substance: QUETIAPINE
     Indication: Restlessness
     Dosage: 25 MILLIGRAM, QD (25 MG (PIL DOOR VIEREN DELEN) PER DAG)
     Dates: start: 2017

REACTIONS (2)
  - Fatigue [Recovering/Resolving]
  - Electric shock sensation [Recovered/Resolved]
